FAERS Safety Report 22164912 (Version 2)
Quarter: 2023Q2

REPORT INFORMATION
  Report Type: Spontaneous
  Country: US (occurrence: None)
  Receive Date: 20230403
  Receipt Date: 20230505
  Transmission Date: 20230722
  Serious: Yes (Other)
  Sender: FDA-Public Use
  Company Number: US-ROCHE-3316687

PATIENT
  Age: 69 Year
  Sex: Male

DRUGS (7)
  1. RITUXIMAB [Suspect]
     Active Substance: RITUXIMAB
     Indication: Ulcerative keratitis
     Route: 065
  2. RITUXIMAB [Suspect]
     Active Substance: RITUXIMAB
     Indication: Scleritis
  3. VABYSMO [Suspect]
     Active Substance: FARICIMAB-SVOA
     Indication: Diabetic retinal oedema
     Dosage: ON 22/DEC/2022, THE LAST DOSE OF VABYSMO INJECTIONS RECEIVED PRIOR TO EVENT.
     Route: 065
     Dates: start: 20220501, end: 20221222
  4. PREDNISONE [Concomitant]
     Active Substance: PREDNISONE
     Route: 048
  5. VITAMIN C [Concomitant]
     Active Substance: ASCORBIC ACID
     Route: 065
  6. EYLEA [Concomitant]
     Active Substance: AFLIBERCEPT
     Dosage: 40 INJECTIONS EYLEA X 5 YEARS
     Route: 065
  7. AFLIBERCEPT [Concomitant]
     Active Substance: AFLIBERCEPT
     Route: 050
     Dates: start: 20170101, end: 20220301

REACTIONS (4)
  - Dellen [Unknown]
  - Cataract [Unknown]
  - Ulcerative keratitis [Unknown]
  - Scleritis [Recovered/Resolved with Sequelae]

NARRATIVE: CASE EVENT DATE: 20221230
